FAERS Safety Report 5150801-X (Version None)
Quarter: 2006Q4

REPORT INFORMATION
  Report Type: 
  Country: None (occurrence: None)
  Receive Date: 20061108
  Receipt Date: 20061026
  Transmission Date: 20070319
  Serious: Yes (Other)
  Sender: FDA-Public Use
  Company Number: 231968

PATIENT
  Age: 70 Year
  Sex: Male

DRUGS (1)
  1. MABTHERA (RITUXIMAB) CONC FOR SOLUTION FOR INFUSION [Suspect]
     Indication: LYMPHOMA
     Dosage: 1/WEEK, INTRAVENOUS
     Route: 042
     Dates: start: 20060101, end: 20060901

REACTIONS (2)
  - QUADRIPARESIS [None]
  - SENSORY DISTURBANCE [None]
